FAERS Safety Report 19218811 (Version 1)
Quarter: 2021Q2

REPORT INFORMATION
  Report Type: Spontaneous
  Country: SE (occurrence: SE)
  Receive Date: 20210505
  Receipt Date: 20210505
  Transmission Date: 20210717
  Serious: Yes (Other)
  Sender: FDA-Public Use
  Company Number: SE-GLAXOSMITHKLINE-SE2021095274

PATIENT
  Sex: Female

DRUGS (1)
  1. LAMICTAL [Suspect]
     Active Substance: LAMOTRIGINE
     Indication: EPILEPSY
     Dosage: UNK

REACTIONS (12)
  - Noninfective encephalitis [Unknown]
  - Meningism [Unknown]
  - Balance disorder [Unknown]
  - Vomiting [Unknown]
  - Drug hypersensitivity [Unknown]
  - Hypersomnia [Unknown]
  - Headache [Unknown]
  - Performance status decreased [Unknown]
  - Movement disorder [Unknown]
  - Condition aggravated [Unknown]
  - Drug ineffective [Unknown]
  - Gait inability [Unknown]
